FAERS Safety Report 5977223-3 (Version None)
Quarter: 2008Q4

REPORT INFORMATION
  Report Type: 
  Country: None (occurrence: None)
  Receive Date: 20081203
  Receipt Date: 20081104
  Transmission Date: 20090506
  Serious: No
  Sender: FDA-Public Use
  Company Number: US-BAYER-200837531NA

PATIENT
  Age: 55 Year
  Sex: Female
  Weight: 81 kg

DRUGS (2)
  1. ULTRAVIST 370 [Suspect]
     Indication: COMPUTERISED TOMOGRAM ABDOMEN
     Dosage: TOTAL DAILY DOSE: 80 ML  UNIT DOSE: 100 ML
     Route: 042
     Dates: start: 20081103, end: 20081103
  2. ORAL CONTRAST [Concomitant]
     Route: 048
     Dates: start: 20081103, end: 20081103

REACTIONS (2)
  - NASAL CONGESTION [None]
  - SNEEZING [None]
